FAERS Safety Report 15191804 (Version 1)
Quarter: 2018Q3

REPORT INFORMATION
  Report Type: Spontaneous
  Country: US (occurrence: US)
  Receive Date: 20180724
  Receipt Date: 20180724
  Transmission Date: 20181010
  Serious: No
  Sender: FDA-Public Use
  Company Number: US-TARO-2017TAR00682

PATIENT
  Age: 73 Year
  Sex: Male
  Weight: 91.61 kg

DRUGS (1)
  1. FLUOCINONIDE OINTMENT USP 0.05% [Suspect]
     Active Substance: FLUOCINONIDE
     Dosage: UNK UNK, ONCE
     Route: 061
     Dates: start: 20170806, end: 20170806

REACTIONS (2)
  - Hypersensitivity [Recovered/Resolved]
  - Product quality issue [Recovered/Resolved]

NARRATIVE: CASE EVENT DATE: 20170806
